FAERS Safety Report 7817976-2 (Version None)
Quarter: 2011Q4

REPORT INFORMATION
  Report Type: 
  Country: None (occurrence: None)
  Receive Date: 20111017
  Receipt Date: 20111006
  Transmission Date: 20120403
  Serious: Yes (Other)
  Sender: FDA-Public Use
  Company Number: AT-GLAXOSMITHKLINE-B0755415A

PATIENT
  Age: 41 Year
  Sex: Female
  Weight: 55 kg

DRUGS (5)
  1. TRAZODONE HCL [Concomitant]
     Indication: PRODUCT USED FOR UNKNOWN INDICATION
     Dosage: 2TAB AT NIGHT
  2. GINKGO BILOBA [Concomitant]
     Indication: PRODUCT USED FOR UNKNOWN INDICATION
     Dosage: 80MG TWICE PER DAY
     Route: 065
  3. SEROQUEL XR [Concomitant]
     Indication: DEPRESSION
     Dosage: 200MG TWICE PER DAY
     Route: 065
     Dates: start: 20100901
  4. OXAZEPAM [Concomitant]
  5. LAMICTAL [Suspect]
     Indication: EPILEPSY
     Dosage: 200MG TWICE PER DAY
     Route: 065
     Dates: start: 20110601, end: 20110901

REACTIONS (2)
  - BIPOLAR DISORDER [None]
  - MANIA [None]
